FAERS Safety Report 7026792-3 (Version None)
Quarter: 2010Q4

REPORT INFORMATION
  Report Type: 
  Country: None (occurrence: None)
  Receive Date: 20101004
  Receipt Date: 20100518
  Transmission Date: 20110411
  Serious: Yes (Other)
  Sender: FDA-Public Use
  Company Number: NL-ROCHE-726690

PATIENT
  Age: 32 Year
  Sex: Female

DRUGS (2)
  1. AVASTIN [Suspect]
     Indication: BREAST CANCER
     Route: 042
  2. PACLITAXEL [Suspect]
     Indication: BREAST CANCER
     Route: 042

REACTIONS (1)
  - DISEASE PROGRESSION [None]
